FAERS Safety Report 7680521-9 (Version None)
Quarter: 2011Q3

REPORT INFORMATION
  Report Type: 
  Country: None (occurrence: None)
  Receive Date: 20110812
  Receipt Date: 20110801
  Transmission Date: 20111222
  Serious: Yes (Hospitalization)
  Sender: FDA-Public Use
  Company Number: US-JNJFOC-20110602132

PATIENT
  Sex: Female
  Weight: 45 kg

DRUGS (10)
  1. INFLIXIMAB, RECOMBINANT [Suspect]
     Indication: CROHN'S DISEASE
     Route: 042
     Dates: start: 20100831
  2. INFLIXIMAB, RECOMBINANT [Suspect]
     Route: 042
     Dates: start: 20100831
  3. INFLIXIMAB, RECOMBINANT [Suspect]
     Route: 042
     Dates: start: 20080923
  4. INFLIXIMAB, RECOMBINANT [Suspect]
     Indication: INFLAMMATORY BOWEL DISEASE
     Dosage: TOTAL 21 DOSES
     Route: 042
     Dates: start: 20100803
  5. METHOTREXATE [Concomitant]
  6. INFLIXIMAB, RECOMBINANT [Suspect]
     Route: 042
     Dates: start: 20080923
  7. PREDNISONE [Concomitant]
  8. MESALAMINE [Concomitant]
  9. INFLIXIMAB, RECOMBINANT [Suspect]
     Dosage: TOTAL 21 DOSES
     Route: 042
     Dates: start: 20100803
  10. HUMIRA [Concomitant]

REACTIONS (2)
  - GASTROENTERITIS VIRAL [None]
  - CROHN'S DISEASE [None]
